FAERS Safety Report 4711509-5 (Version None)
Quarter: 2005Q3

REPORT INFORMATION
  Report Type: 
  Country: None (occurrence: None)
  Receive Date: 20050711
  Receipt Date: 20050711
  Transmission Date: 20060218
  Serious: Yes (Hospitalization, Disabling)
  Sender: FDA-Public Use
  Company Number: None

PATIENT
  Sex: Male
  Weight: 67.1324 kg

DRUGS (1)
  1. LIPITOR [Suspect]

REACTIONS (3)
  - FALL [None]
  - FATIGUE [None]
  - MUSCULAR WEAKNESS [None]
